FAERS Safety Report 6227390-1 (Version None)
Quarter: 2009Q2

REPORT INFORMATION
  Report Type: 
  Country: None (occurrence: None)
  Receive Date: 20090610
  Receipt Date: 20090610
  Transmission Date: 20091009
  Serious: No
  Sender: FDA-Public Use
  Company Number: None

PATIENT
  Age: 75 Year
  Sex: Male
  Weight: 42.6 kg

DRUGS (2)
  1. CLONAZEPAM [Suspect]
     Indication: ANXIETY
     Dosage: 0.5 MG HS PO
     Route: 048
     Dates: start: 20060426, end: 20090604
  2. CLONAZEPAM [Suspect]
     Indication: SLEEP DISORDER
     Dosage: 0.5 MG HS PO
     Route: 048
     Dates: start: 20060426, end: 20090604

REACTIONS (2)
  - ATAXIA [None]
  - FALL [None]
